FAERS Safety Report 12693348 (Version 3)
Quarter: 2016Q4

REPORT INFORMATION
  Report Type: Spontaneous
  Country: US (occurrence: US)
  Receive Date: 20160829
  Receipt Date: 20161115
  Transmission Date: 20170207
  Serious: Yes (Other)
  Sender: FDA-Public Use
  Company Number: US-PFIZER INC-2016401694

PATIENT
  Age: 73 Year
  Sex: Female
  Weight: 48 kg

DRUGS (2)
  1. DEPO-MEDROL [Suspect]
     Active Substance: METHYLPREDNISOLONE ACETATE
     Dosage: UNK UNK, SINGLE
     Route: 042
     Dates: start: 2014, end: 2014
  2. KLOR-CON [Concomitant]
     Active Substance: POTASSIUM CHLORIDE
     Dosage: 10 MEQ, 2X/DAY
     Route: 048
     Dates: start: 201402, end: 201403

REACTIONS (13)
  - Vertigo [Not Recovered/Not Resolved]
  - Loss of consciousness [Unknown]
  - Aphasia [Not Recovered/Not Resolved]
  - Skin disorder [Unknown]
  - Abasia [Not Recovered/Not Resolved]
  - Hypersensitivity [Recovered/Resolved with Sequelae]
  - Fat tissue increased [Not Recovered/Not Resolved]
  - Burning sensation [Not Recovered/Not Resolved]
  - Alopecia [Unknown]
  - Product use issue [Unknown]
  - Barotrauma [Unknown]
  - Fluid retention [Recovered/Resolved]
  - Malaise [Not Recovered/Not Resolved]

NARRATIVE: CASE EVENT DATE: 2014
